FAERS Safety Report 10175708 (Version 2)
Quarter: 2014Q2

REPORT INFORMATION
  Report Type: Report from Study
  Country: CA (occurrence: CA)
  Receive Date: 20140516
  Receipt Date: 20140523
  Transmission Date: 20141212
  Serious: Yes (Other)
  Sender: FDA-Public Use
  Company Number: CA-JNJFOC-20140505562

PATIENT
  Age: 22 Year
  Sex: Female
  Weight: 77.2 kg

DRUGS (2)
  1. REMICADE [Suspect]
     Indication: RHEUMATOID ARTHRITIS
     Route: 042
  2. METHOTREXATE [Concomitant]
     Dosage: 8 TABLETS WEEKLY
     Route: 048

REACTIONS (2)
  - Cervical dysplasia [Unknown]
  - Nasopharyngitis [Unknown]
